FAERS Safety Report 5065942-5 (Version None)
Quarter: 2006Q3

REPORT INFORMATION
  Report Type: 
  Country: None (occurrence: None)
  Receive Date: 20060726
  Receipt Date: 20060717
  Transmission Date: 20061208
  Serious: Yes (Hospitalization, Other)
  Sender: FDA-Public Use
  Company Number: 2006-05-2170

PATIENT
  Age: 54 Year
  Sex: Male
  Weight: 99.7913 kg

DRUGS (3)
  1. PEG-INTERFERON ALFA-2B REDIPEN [Suspect]
     Indication: HEPATITIS C
     Dosage: QWK SUBCUTANEOUS
     Route: 058
     Dates: start: 20060213, end: 20060518
  2. RIBAVIRIN [Suspect]
     Indication: HEPATITIS C
     Dosage: QD ORAL
     Route: 048
     Dates: start: 20060213, end: 20060518
  3. DEMEROL PRN [Concomitant]

REACTIONS (10)
  - ANAEMIA [None]
  - ARTHRITIS [None]
  - ASTHENIA [None]
  - CONDITION AGGRAVATED [None]
  - FACIAL PARESIS [None]
  - FLUSHING [None]
  - GUILLAIN-BARRE SYNDROME [None]
  - NAUSEA [None]
  - NEUROPATHY PERIPHERAL [None]
  - WEIGHT DECREASED [None]
